FAERS Safety Report 14879027 (Version 1)
Quarter: 2018Q2

REPORT INFORMATION
  Report Type: Spontaneous
  Country: FR (occurrence: FR)
  Receive Date: 20180511
  Receipt Date: 20180511
  Transmission Date: 20180711
  Serious: Yes (Hospitalization)
  Sender: FDA-Public Use
  Company Number: FR-ROCHE-2122266

PATIENT
  Age: 62 Year
  Sex: Female

DRUGS (22)
  1. IFOSFAMIDE. [Suspect]
     Active Substance: IFOSFAMIDE
     Indication: DIFFUSE LARGE B-CELL LYMPHOMA
     Route: 041
     Dates: start: 20180221, end: 20180223
  2. WELLVONE [Suspect]
     Active Substance: ATOVAQUONE
     Indication: PRODUCT USED FOR UNKNOWN INDICATION
     Dosage: WELLVONE 750 MG/5 ML, SUSPENSION BUVABLE
     Route: 048
     Dates: start: 20180222
  3. OROZAMUDOL [Concomitant]
     Active Substance: TRAMADOL
     Route: 065
  4. CERIS [Concomitant]
     Active Substance: TROSPIUM CHLORIDE
     Route: 048
  5. TEMESTA (FRANCE) [Concomitant]
     Active Substance: LORAZEPAM
     Route: 048
  6. METHYLPREDNISOLONE. [Concomitant]
     Active Substance: METHYLPREDNISOLONE
     Route: 042
     Dates: start: 20180220, end: 20180220
  7. LAMOTRIGINE. [Concomitant]
     Active Substance: LAMOTRIGINE
     Route: 048
  8. PRIMPERAN [Concomitant]
     Active Substance: METOCLOPRAMIDE HYDROCHLORIDE
     Route: 048
  9. IMOVANE [Concomitant]
     Active Substance: ZOPICLONE
     Route: 048
  10. MESNA. [Suspect]
     Active Substance: MESNA
     Indication: PRODUCT USED FOR UNKNOWN INDICATION
     Dosage: MESNA EG 100 MG/ML, SOLUTION INJECTABLE POUR PERFUSION
     Route: 041
     Dates: start: 20180221, end: 20180223
  11. METHYLPREDNISOLONE. [Concomitant]
     Active Substance: METHYLPREDNISOLONE
     Route: 042
     Dates: start: 20180220, end: 20180220
  12. ATORVASTATINE [Concomitant]
     Active Substance: ATORVASTATIN
     Route: 048
  13. NOVONORM [Concomitant]
     Active Substance: REPAGLINIDE
     Route: 048
  14. ZOPHREN [Concomitant]
     Active Substance: ONDANSETRON
     Route: 048
  15. PANTOPRAZOLE [Concomitant]
     Active Substance: PANTOPRAZOLE
     Route: 048
  16. GRANOCYTE [Concomitant]
     Active Substance: LENOGRASTIM
     Route: 058
  17. SPECIAFOLDINE [Concomitant]
     Active Substance: FOLIC ACID
     Route: 048
  18. TERCIAN [Concomitant]
     Active Substance: CYAMEMAZINE
     Dosage: UNIT DOSE: 10 [DRP]?TERCIAN 40 MG/ML, SOLUTION BUVABLE EN GOUTTES
     Route: 048
  19. LANSOYL FRAMBOISE [Concomitant]
     Active Substance: MINERAL OIL
     Route: 065
  20. RITUXIMAB. [Suspect]
     Active Substance: RITUXIMAB
     Indication: DIFFUSE LARGE B-CELL LYMPHOMA
     Dosage: RITUXIMAB ((MAMMIFERE/HAMSTER/CELLULES CHO))
     Route: 041
     Dates: start: 20171120, end: 20180220
  21. ARACYTINE [Suspect]
     Active Substance: CYTARABINE
     Indication: DIFFUSE LARGE B-CELL LYMPHOMA
     Route: 041
     Dates: start: 20180221, end: 20180222
  22. ZELITREX [Concomitant]
     Active Substance: VALACYCLOVIR HYDROCHLORIDE
     Route: 048

REACTIONS (2)
  - Confusional state [Recovering/Resolving]
  - Hallucination [Recovering/Resolving]

NARRATIVE: CASE EVENT DATE: 20180227
